FAERS Safety Report 13197407 (Version 1)
Quarter: 2017Q1

REPORT INFORMATION
  Report Type: Spontaneous
  Country: US (occurrence: US)
  Receive Date: 20170207
  Receipt Date: 20170207
  Transmission Date: 20170428
  Serious: No
  Sender: FDA-Public Use
  Company Number: None

PATIENT
  Age: 68 Year
  Sex: Female

DRUGS (2)
  1. IBRANCE [Suspect]
     Active Substance: PALBOCICLIB
     Indication: BREAST CANCER FEMALE
     Dosage: 75 MG TAKE 1 CAPSSULE BY MOUTH DAILY
     Route: 048
     Dates: start: 20150730
  2. IBRANCE [Suspect]
     Active Substance: PALBOCICLIB
     Indication: METASTASES TO LYMPH NODES
     Dosage: 75 MG TAKE 1 CAPSSULE BY MOUTH DAILY
     Route: 048
     Dates: start: 20150730

REACTIONS (2)
  - Fatigue [None]
  - Depression [None]

NARRATIVE: CASE EVENT DATE: 20170203
